FAERS Safety Report 8503960-2 (Version None)
Quarter: 2012Q3

REPORT INFORMATION
  Report Type: 
  Country: None (occurrence: None)
  Receive Date: 20120711
  Receipt Date: 20120702
  Transmission Date: 20120928
  Serious: Yes (Hospitalization)
  Sender: FDA-Public Use
  Company Number: US-ACTELION-A-US2012-67781

PATIENT

DRUGS (3)
  1. ADCIRCA [Concomitant]
  2. PLAVIX [Concomitant]
  3. TRACLEER [Suspect]
     Indication: PULMONARY ARTERIAL HYPERTENSION
     Dosage: UNK
     Route: 048
     Dates: start: 20120604

REACTIONS (3)
  - RENAL DISORDER [None]
  - BLOOD COUNT ABNORMAL [None]
  - DIALYSIS [None]
